FAERS Safety Report 12540095 (Version 1)
Quarter: 2016Q3

REPORT INFORMATION
  Report Type: Spontaneous
  Country: US (occurrence: None)
  Receive Date: 20160707
  Receipt Date: 20160707
  Transmission Date: 20161109
  Serious: Yes (Disabling)
  Sender: FDA-Public Use
  Company Number: None

PATIENT
  Age: 24 Year
  Sex: Female
  Weight: 86.18 kg

DRUGS (5)
  1. HYDROCHLOROTHIAZDE 12.5 MG CAP MYL [Concomitant]
     Active Substance: HYDROCHLOROTHIAZIDE
  2. CHANTIX [Suspect]
     Active Substance: VARENICLINE TARTRATE
     Indication: SMOKING CESSATION THERAPY
     Route: 048
     Dates: start: 20160501, end: 20160706
  3. BIRTH CONTROL [Concomitant]
     Active Substance: UNSPECIFIED INGREDIENT
  4. RANITIDINE. [Concomitant]
     Active Substance: RANITIDINE
  5. NAPROXEN. [Concomitant]
     Active Substance: NAPROXEN

REACTIONS (5)
  - Product label issue [None]
  - Arthralgia [None]
  - Impaired work ability [None]
  - Pain in extremity [None]
  - Back pain [None]

NARRATIVE: CASE EVENT DATE: 20160629
